FAERS Safety Report 18209531 (Version 1)
Quarter: 2020Q3

REPORT INFORMATION
  Report Type: Spontaneous
  Country: US (occurrence: US)
  Receive Date: 20200828
  Receipt Date: 20200828
  Transmission Date: 20201103
  Serious: Yes (Hospitalization, Other)
  Sender: FDA-Public Use
  Company Number: US-ASTRAZENECA-2020SF09095

PATIENT
  Sex: Male

DRUGS (10)
  1. SYNTHROID [Suspect]
     Active Substance: LEVOTHYROXINE SODIUM
     Route: 064
  2. CREON [Suspect]
     Active Substance: PANCRELIPASE AMYLASE\PANCRELIPASE LIPASE\PANCRELIPASE PROTEASE
     Route: 064
  3. LANTUS [Suspect]
     Active Substance: INSULIN GLARGINE
     Route: 064
  4. CYMBALTA [Suspect]
     Active Substance: DULOXETINE HYDROCHLORIDE
     Route: 064
  5. PERCOCET [Suspect]
     Active Substance: ACETAMINOPHEN\OXYCODONE HYDROCHLORIDE
     Route: 064
  6. ABILIFY [Suspect]
     Active Substance: ARIPIPRAZOLE
     Route: 064
  7. APIDRA [Suspect]
     Active Substance: INSULIN GLULISINE
     Route: 064
  8. CYMBALTA [Suspect]
     Active Substance: DULOXETINE HYDROCHLORIDE
     Route: 064
  9. APIDRA [Suspect]
     Active Substance: INSULIN GLULISINE
     Route: 064
  10. OMEPRAZOLE. [Suspect]
     Active Substance: OMEPRAZOLE
     Route: 064

REACTIONS (12)
  - Transient tachypnoea of the newborn [Recovered/Resolved]
  - Neonatal respiratory distress [Recovered/Resolved]
  - Poor feeding infant [Recovered/Resolved]
  - Foetal exposure during pregnancy [Unknown]
  - Premature baby [Unknown]
  - Sepsis neonatal [Recovered/Resolved]
  - Extrapyramidal disorder [Recovered/Resolved]
  - Haemangioma [Recovered/Resolved]
  - Hypoglycaemia neonatal [Recovered/Resolved]
  - Jaundice neonatal [Unknown]
  - Dyskinesia neonatal [Recovered/Resolved]
  - Neonatal intestinal dilatation [Recovered/Resolved]
